FAERS Safety Report 7568192-3 (Version None)
Quarter: 2011Q2

REPORT INFORMATION
  Report Type: 
  Country: None (occurrence: None)
  Receive Date: 20110623
  Receipt Date: 20110622
  Transmission Date: 20111010
  Serious: Yes (Other)
  Sender: FDA-Public Use
  Company Number: US-PFIZER INC-2011138767

PATIENT
  Sex: Female
  Weight: 61.224 kg

DRUGS (4)
  1. CHANTIX [Suspect]
     Indication: SMOKING CESSATION THERAPY
     Dosage: 0.5MG DAILY
     Route: 048
     Dates: start: 20100201
  2. ASPIRIN [Concomitant]
     Indication: ANTICOAGULANT THERAPY
     Dosage: 81 MG, DAILY
     Route: 048
  3. CHANTIX [Suspect]
     Dosage: 0.5MG DAILY
     Dates: start: 20110601
  4. SYNTHROID [Concomitant]
     Indication: THYROIDECTOMY
     Dosage: 125 UG, DAILY
     Route: 048

REACTIONS (3)
  - HEART RATE ABNORMAL [None]
  - CARDIAC DISORDER [None]
  - HEART RATE DECREASED [None]
